FAERS Safety Report 12836982 (Version 2)
Quarter: 2017Q3

REPORT INFORMATION
  Report Type: Report from Study
  Country: BR (occurrence: BR)
  Receive Date: 20161011
  Receipt Date: 20170803
  Transmission Date: 20171127
  Serious: Yes (Death, Other)
  Sender: FDA-Public Use
  Company Number: BR-MYLANLABS-2016M1043230

PATIENT

DRUGS (1)
  1. EFAVIRENZ/LAMIVUDINE/TENOFOVIR [Suspect]
     Active Substance: EFAVIRENZ\LAMIVUDINE\TENOFOVIR
     Indication: PRODUCT USED FOR UNKNOWN INDICATION
     Dosage: 1200 MG, QD
     Route: 064

REACTIONS (3)
  - Stillbirth [Recovered/Resolved]
  - Foetal distress syndrome [Fatal]
  - Foetal exposure during pregnancy [Recovered/Resolved]

NARRATIVE: CASE EVENT DATE: 20160818
